FAERS Safety Report 17241815 (Version 1)
Quarter: 2020Q1

REPORT INFORMATION
  Report Type: Spontaneous
  Country: CN (occurrence: CN)
  Receive Date: 20200107
  Receipt Date: 20200107
  Transmission Date: 20200409
  Serious: Yes (Other)
  Sender: FDA-Public Use
  Company Number: CN-PFIZER INC-2020003552

PATIENT
  Age: 84 Year
  Sex: Male

DRUGS (1)
  1. ZYVOX [Suspect]
     Active Substance: LINEZOLID
     Indication: BACTERIAL INFECTION
     Dosage: 600 MG, 2X/DAY
     Route: 041
     Dates: start: 20191206, end: 20191217

REACTIONS (2)
  - Gastrointestinal haemorrhage [Unknown]
  - Platelet count decreased [Recovered/Resolved]

NARRATIVE: CASE EVENT DATE: 20191212
